FAERS Safety Report 10024632 (Version 1)
Quarter: 2014Q1

REPORT INFORMATION
  Report Type: Spontaneous
  Country: GB (occurrence: None)
  Receive Date: 20140204
  Receipt Date: 20140204
  Transmission Date: 20141002
  Serious: Yes (Death, Hospitalization, Other)
  Sender: FDA-Public Use
  Company Number: CO-OR-UK-2013-043

PATIENT
  Age: 16 Year
  Sex: Male

DRUGS (1)
  1. PREDNISOLONE (PREDNISOLONE) [Suspect]
     Indication: SARCOIDOSIS

REACTIONS (2)
  - General physical health deterioration [None]
  - Drug ineffective [None]
